FAERS Safety Report 14783913 (Version 1)
Quarter: 2018Q2

REPORT INFORMATION
  Report Type: Spontaneous
  Country: FR (occurrence: FR)
  Receive Date: 20180420
  Receipt Date: 20180420
  Transmission Date: 20180711
  Serious: Yes (Hospitalization)
  Sender: FDA-Public Use
  Company Number: FR-009507513-1804FRA007123

PATIENT
  Age: 33 Year
  Sex: Female

DRUGS (3)
  1. OVITRELLE [Suspect]
     Active Substance: CHORIOGONADOTROPIN ALFA
     Indication: OVULATION INDUCTION
     Dosage: UNK
     Route: 058
     Dates: start: 20160109, end: 20160205
  2. ORGALUTRAN [Suspect]
     Active Substance: GANIRELIX ACETATE
     Indication: OVULATION INDUCTION
     Dosage: UNK
     Route: 058
     Dates: start: 20160109, end: 20160205
  3. GONAL-F [Suspect]
     Active Substance: FOLLITROPIN
     Indication: OVULATION INDUCTION
     Dosage: UNK
     Route: 058
     Dates: start: 20160109, end: 20160207

REACTIONS (1)
  - Adrenal adenoma [Not Recovered/Not Resolved]

NARRATIVE: CASE EVENT DATE: 20180326
